FAERS Safety Report 8060615-9 (Version None)
Quarter: 2012Q1

REPORT INFORMATION
  Report Type: 
  Country: None (occurrence: None)
  Receive Date: 20120119
  Receipt Date: 20120119
  Transmission Date: 20120608
  Serious: No
  Sender: FDA-Public Use
  Company Number: None

PATIENT
  Age: 39 Year
  Sex: Male

DRUGS (3)
  1. GEMFIBROZIL [Concomitant]
  2. PEGINTRON 150 MG SCHERING-PLOUGH [Suspect]
     Dosage: WEEKLY SUBCUTANEOUS
     Route: 058
  3. RIBAVIRIN [Suspect]
     Indication: HEPATITIS C
     Dosage: BID PO
     Route: 048
     Dates: start: 20110421, end: 20111027

REACTIONS (2)
  - RASH GENERALISED [None]
  - ERYTHEMA MULTIFORME [None]
